FAERS Safety Report 18314826 (Version 11)
Quarter: 2022Q1

REPORT INFORMATION
  Report Type: Spontaneous
  Country: CA (occurrence: CA)
  Receive Date: 20200926
  Receipt Date: 20220308
  Transmission Date: 20220423
  Serious: Yes (Hospitalization, Other)
  Sender: FDA-Public Use
  Company Number: CA-CELLTRION INC.-2020CA023964

PATIENT

DRUGS (15)
  1. INFLECTRA [Suspect]
     Active Substance: INFLIXIMAB-DYYB
     Indication: Colitis ulcerative
     Dosage: 10 MG/KG AT WEEK 0 AND 2
     Route: 042
     Dates: start: 20200630, end: 20200714
  2. INFLECTRA [Suspect]
     Active Substance: INFLIXIMAB-DYYB
     Dosage: 10 MG/KG AT WEEK 0 AND 2
     Route: 042
     Dates: start: 20200702
  3. INFLECTRA [Suspect]
     Active Substance: INFLIXIMAB-DYYB
     Dosage: 10 MG/KG AT WEEK 0 AND 2
     Route: 042
     Dates: start: 20200714
  4. INFLECTRA [Suspect]
     Active Substance: INFLIXIMAB-DYYB
     Dosage: 5 MG/KG AT WEEK 6, THEN EVERY 8 WEEKS
     Route: 042
     Dates: start: 20200813
  5. INFLECTRA [Suspect]
     Active Substance: INFLIXIMAB-DYYB
     Dosage: 5 MG/KG AT WEEK 6, THEN EVERY 8 WEEKS
     Route: 042
     Dates: start: 20201006
  6. INFLECTRA [Suspect]
     Active Substance: INFLIXIMAB-DYYB
     Dosage: 5 MG/KG AT WEEK 6, THEN EVERY 8 WEEKS
     Route: 042
     Dates: start: 20201130
  7. INFLECTRA [Suspect]
     Active Substance: INFLIXIMAB-DYYB
     Dosage: 5 MG/KG AT WEEK 6, THEN EVERY 8 WEEKS
     Route: 042
     Dates: start: 20210126
  8. INFLECTRA [Suspect]
     Active Substance: INFLIXIMAB-DYYB
     Dosage: 5 MG/KG AT WEEK 6, THEN EVERY 8 WEEKS
     Route: 042
     Dates: start: 20210323
  9. INFLECTRA [Suspect]
     Active Substance: INFLIXIMAB-DYYB
     Dosage: 5 MG/KG AT WEEK 6, THEN EVERY 8 WEEKS
     Route: 042
     Dates: start: 20210518
  10. INFLECTRA [Suspect]
     Active Substance: INFLIXIMAB-DYYB
     Dosage: 5 MG/KG AT WEEK 6, THEN EVERY 8 WEEKS
     Route: 042
     Dates: start: 20210713
  11. INFLECTRA [Suspect]
     Active Substance: INFLIXIMAB-DYYB
     Dosage: 5 MG/KG AT WEEK 6, THEN EVERY 8 WEEKS
     Route: 042
     Dates: start: 20210907
  12. INFLECTRA [Suspect]
     Active Substance: INFLIXIMAB-DYYB
     Dosage: 5 MG/KG AT WEEK 6, THEN EVERY 8 WEEKS
     Route: 042
     Dates: start: 20211102
  13. INFLECTRA [Suspect]
     Active Substance: INFLIXIMAB-DYYB
     Dosage: 5 MG/KG AT WEEK 6, THEN EVERY 8 WEEKS
     Route: 042
     Dates: start: 20211228
  14. INFLECTRA [Suspect]
     Active Substance: INFLIXIMAB-DYYB
     Dosage: 5 MG/KG AT WEEK 6, THEN EVERY 8 WEEKS
     Route: 042
     Dates: start: 20220223
  15. BETAMETHASONE SODIUM PHOSPHATE [Concomitant]
     Active Substance: BETAMETHASONE SODIUM PHOSPHATE
     Dosage: UNK

REACTIONS (11)
  - Clostridium difficile infection [Recovering/Resolving]
  - COVID-19 [Recovered/Resolved]
  - Off label use [Unknown]
  - Product use issue [Unknown]
  - Intentional product use issue [Unknown]
  - Incorrect dose administered [Unknown]
  - Blood pressure increased [Unknown]
  - Heart rate abnormal [Unknown]
  - Weight fluctuation [Unknown]
  - Condition aggravated [Not Recovered/Not Resolved]
  - Exposure to SARS-CoV-2 [Unknown]

NARRATIVE: CASE EVENT DATE: 20200630
